FAERS Safety Report 6667152-4 (Version None)
Quarter: 2010Q2

REPORT INFORMATION
  Report Type: 
  Country: None (occurrence: None)
  Receive Date: 20100405
  Receipt Date: 20100319
  Transmission Date: 20101027
  Serious: Yes (Other)
  Sender: FDA-Public Use
  Company Number: MX-JNJFOC-20100400203

PATIENT
  Sex: Female

DRUGS (2)
  1. LEUSTATIN [Suspect]
     Indication: HAIRY CELL LEUKAEMIA
     Dosage: DURING 7 DAYS
     Route: 065
  2. INTERFERON [Concomitant]
     Indication: HAIRY CELL LEUKAEMIA
     Route: 065

REACTIONS (10)
  - HAEMOGLOBIN DECREASED [None]
  - HEADACHE [None]
  - INFECTION [None]
  - MALAISE [None]
  - PLATELET COUNT DECREASED [None]
  - PYREXIA [None]
  - TREMOR [None]
  - URINARY RETENTION [None]
  - VOMITING [None]
  - WHITE BLOOD CELL COUNT DECREASED [None]
